FAERS Safety Report 5984277-7 (Version None)
Quarter: 2008Q4

REPORT INFORMATION
  Report Type: 
  Country: None (occurrence: None)
  Receive Date: 20081205
  Receipt Date: 20081205
  Transmission Date: 20090506
  Serious: No
  Sender: FDA-Public Use
  Company Number: None

PATIENT
  Age: 4 Month
  Sex: Female
  Weight: 6.7132 kg

DRUGS (1)
  1. RANITIDINE [Suspect]
     Indication: GASTROOESOPHAGEAL REFLUX DISEASE
     Dosage: 7.5 MLS 3XDAY ORALLY
     Route: 048
     Dates: start: 20081119, end: 20081122

REACTIONS (6)
  - ACCIDENTAL OVERDOSE [None]
  - ANOREXIA [None]
  - DRUG DISPENSING ERROR [None]
  - IRRITABILITY [None]
  - MEDICATION ERROR [None]
  - SOMNOLENCE [None]
